FAERS Safety Report 19043151 (Version 1)
Quarter: 2021Q1

REPORT INFORMATION
  Report Type: Other
  Country: US (occurrence: GB)
  Receive Date: 20210323
  Receipt Date: 20210323
  Transmission Date: 20210420
  Serious: Yes (Hospitalization, Disabling, Other)
  Sender: FDA-Public Use
  Company Number: GB-BRECKENRIDGE PHARMACEUTICAL, INC.-2108320

PATIENT
  Age: 49 Year
  Sex: Male

DRUGS (8)
  1. ASPIRIN. [Concomitant]
     Active Substance: ASPIRIN
  2. BISOPROLOL. [Concomitant]
     Active Substance: BISOPROLOL FUMARATE
  3. TRAMADOL. [Concomitant]
     Active Substance: TRAMADOL
  4. OMEPRAZOLE. [Suspect]
     Active Substance: OMEPRAZOLE
  5. PARACETAMOL [Concomitant]
     Active Substance: ACETAMINOPHEN
  6. LISINOPRIL. [Concomitant]
     Active Substance: LISINOPRIL
  7. IBUPROFEN. [Concomitant]
     Active Substance: IBUPROFEN
  8. ATORVASTATIN CALCIUM. [Concomitant]
     Active Substance: ATORVASTATIN CALCIUM

REACTIONS (4)
  - Syncope [None]
  - Hypotension [None]
  - Acute kidney injury [None]
  - Colitis ischaemic [None]
